FAERS Safety Report 20570829 (Version 1)
Quarter: 2022Q1

REPORT INFORMATION
  Report Type: Spontaneous
  Country: CA (occurrence: CA)
  Receive Date: 20220309
  Receipt Date: 20220309
  Transmission Date: 20220423
  Serious: Yes (Other)
  Sender: FDA-Public Use
  Company Number: CA-SUN PHARMACEUTICAL INDUSTRIES LTD-2022R1-329007

PATIENT
  Sex: Male

DRUGS (3)
  1. FLUVOXAMINE [Interacting]
     Active Substance: FLUVOXAMINE
     Indication: Catatonia
     Dosage: 200 MILLIGRAM, DAILY
     Route: 065
  2. CLOZAPINE [Interacting]
     Active Substance: CLOZAPINE
     Indication: Catatonia
     Dosage: 500 MILLIGRAM, DAILY
     Route: 065
  3. CLOZAPINE [Interacting]
     Active Substance: CLOZAPINE
     Dosage: 200 MILLIGRAM, DAILY
     Route: 065

REACTIONS (4)
  - Drug interaction [Unknown]
  - Constipation [Unknown]
  - Salivary hypersecretion [Unknown]
  - Sedation [Unknown]
